FAERS Safety Report 8607094 (Version 5)
Quarter: 2014Q1

REPORT INFORMATION
  Report Type: Report from Study
  Country: DE (occurrence: DE)
  Receive Date: 20120611
  Receipt Date: 20140227
  Transmission Date: 20141002
  Serious: Yes (Hospitalization)
  Sender: FDA-Public Use
  Company Number: DE-UCBSA-058661

PATIENT
  Age: 68 Year
  Sex: Male
  Weight: 94 kg

DRUGS (17)
  1. CIMZIA [Suspect]
     Indication: RHEUMATOID ARTHRITIS
     Dosage: BATCH NO: UNKNOWN
     Dates: start: 201012, end: 20120523
  2. CIMZIA [Suspect]
     Indication: RHEUMATOID ARTHRITIS
     Dosage: 400 MG
     Route: 058
     Dates: start: 201205, end: 2012
  3. MTX [Suspect]
     Indication: RHEUMATOID ARTHRITIS
     Route: 058
     Dates: start: 200903, end: 20120523
  4. MTX [Suspect]
     Indication: RHEUMATOID ARTHRITIS
     Dates: start: 201206
  5. PREDNISOLON [Concomitant]
     Indication: RHEUMATOID ARTHRITIS
     Dosage: 12.5 MG
     Dates: start: 20120513
  6. ABATACEPT [Concomitant]
     Dates: start: 20120530
  7. AMITRIPTYLINE [Concomitant]
  8. CO-DIOVAN [Concomitant]
  9. ZOLOFT [Concomitant]
  10. OMEPRAZOLE [Concomitant]
  11. CALCIMAGON D3 [Concomitant]
  12. AGGRENOX 200/25 [Concomitant]
     Dosage: 200/25
  13. ACTONEL [Concomitant]
  14. DEKRISTOL [Concomitant]
  15. LYRICA [Concomitant]
  16. PALLADON [Concomitant]
  17. FOLIC ACID [Concomitant]

REACTIONS (4)
  - Herpes zoster [Recovering/Resolving]
  - Infection [Unknown]
  - Rheumatoid arthritis [Unknown]
  - Gastrointestinal infection [Unknown]
